FAERS Safety Report 6093948-6 (Version None)
Quarter: 2009Q1

REPORT INFORMATION
  Report Type: 
  Country: None (occurrence: None)
  Receive Date: 20090226
  Receipt Date: 20090220
  Transmission Date: 20090719
  Serious: Yes (Hospitalization)
  Sender: FDA-Public Use
  Company Number: A0770310A

PATIENT
  Age: 58 Year
  Sex: Male
  Weight: 96.4 kg

DRUGS (11)
  1. AVANDIA [Suspect]
     Indication: DIABETES MELLITUS
     Dosage: 8MG PER DAY
     Route: 048
     Dates: start: 20040913, end: 20070314
  2. GLUCOPHAGE [Concomitant]
  3. METFORMIN [Concomitant]
  4. GLYBURIDE [Concomitant]
  5. ATENOLOL [Concomitant]
  6. TOPROL-XL [Concomitant]
  7. ZOCOR [Concomitant]
  8. LIPITOR [Concomitant]
  9. ZETIA [Concomitant]
  10. NORVASC [Concomitant]
  11. PROTONIX [Concomitant]

REACTIONS (1)
  - MYOCARDIAL INFARCTION [None]
